FAERS Safety Report 7093645-4 (Version None)
Quarter: 2010Q4

REPORT INFORMATION
  Report Type: 
  Country: None (occurrence: None)
  Receive Date: 20101110
  Receipt Date: 20090928
  Transmission Date: 20110411
  Serious: No
  Sender: FDA-Public Use
  Company Number: US-KINGPHARMUSA00001-K200901197

PATIENT
  Sex: Female
  Weight: 55.782 kg

DRUGS (7)
  1. FLECTOR [Suspect]
     Indication: NECK PAIN
     Dosage: 1 PATCH, SINGLE
     Route: 061
     Dates: start: 20090925, end: 20090925
  2. PROTONIX [Concomitant]
     Dosage: UNK
  3. POTASSIUM CHLORIDE [Concomitant]
     Dosage: UNK
  4. PLAVIX [Concomitant]
     Dosage: UNK
  5. DIAZEPAM [Concomitant]
     Indication: ANXIETY
     Dosage: UNK
  6. NITROGLYCERIN [Concomitant]
     Dosage: UNK
     Route: 062
  7. NITROGLYCERIN [Concomitant]
     Dosage: UNK

REACTIONS (2)
  - APPLICATION SITE IRRITATION [None]
  - APPLICATION SITE PRURITUS [None]
